FAERS Safety Report 5456450-8 (Version None)
Quarter: 2007Q3

REPORT INFORMATION
  Report Type: 
  Country: None (occurrence: None)
  Receive Date: 20070918
  Receipt Date: 20070907
  Transmission Date: 20080115
  Serious: Yes (Hospitalization)
  Sender: FDA-Public Use
  Company Number: HQWYE934728APR03

PATIENT
  Sex: Female

DRUGS (1)
  1. PREMPRO [Suspect]
     Dosage: 1 TABLET DAILY; 0.625MG/UNSPECIFIED
     Route: 048

REACTIONS (1)
  - SMALL CELL LUNG CANCER METASTATIC [None]
